FAERS Safety Report 25245933 (Version 1)
Quarter: 2025Q2

REPORT INFORMATION
  Report Type: Spontaneous
  Country: US (occurrence: None)
  Receive Date: 20250428
  Receipt Date: 20250428
  Transmission Date: 20250716
  Serious: No
  Sender: FDA-CTU
  Company Number: None

PATIENT
  Age: 29 Year
  Sex: Female
  Weight: 63 kg

DRUGS (4)
  1. PROTECTINT SPF50 [Suspect]
     Active Substance: HOMOSALATE\OCTISALATE\ZINC OXIDE
     Indication: Photosensitivity reaction
     Route: 061
     Dates: start: 20250411, end: 20250411
  2. SPIRONOLACTONE [Concomitant]
     Active Substance: SPIRONOLACTONE
  3. SUMATRIPTAN [Concomitant]
     Active Substance: SUMATRIPTAN
  4. nutrafol women supplement for hair growth probiotic [Concomitant]

REACTIONS (4)
  - Application site pruritus [None]
  - Rash macular [None]
  - Dermatitis [None]
  - Skin irritation [None]

NARRATIVE: CASE EVENT DATE: 20250411
